FAERS Safety Report 8217621-0 (Version None)
Quarter: 2012Q1

REPORT INFORMATION
  Report Type: 
  Country: None (occurrence: None)
  Receive Date: 20120319
  Receipt Date: 20120319
  Transmission Date: 20120608
  Serious: Yes (Life-Threatening, Hospitalization, Disabling, Other)
  Sender: FDA-Public Use
  Company Number: None

PATIENT
  Sex: Female
  Weight: 97.522 kg

DRUGS (1)
  1. PREDNISONE [Suspect]
     Indication: SCIATICA
     Dosage: 50.0 MG
     Route: 048
     Dates: start: 20120501, end: 20120508

REACTIONS (6)
  - DRUG PRESCRIBING ERROR [None]
  - MOOD SWINGS [None]
  - INCORRECT DOSE ADMINISTERED [None]
  - DRUG DOSE OMISSION [None]
  - SUICIDE ATTEMPT [None]
  - DEPRESSION [None]
